FAERS Safety Report 8792730 (Version 1)
Quarter: 2012Q4

REPORT INFORMATION
  Report Type: 
  Country: FR (occurrence: FR)
  Receive Date: 20120918
  Receipt Date: 20120918
  Transmission Date: 20130627
  Serious: Yes (Hospitalization)
  Sender: FDA-Public Use
  Company Number: FR-ROCHE-1114859

PATIENT
  Age: 41 Year
  Sex: Female

DRUGS (2)
  1. CELLCEPT [Suspect]
     Indication: PROPHYLAXIS AGAINST TRANSPLANT REJECTION
     Route: 048
     Dates: start: 200606, end: 20110412
  2. PROGRAF [Concomitant]

REACTIONS (1)
  - Aphthous stomatitis [Recovered/Resolved]
